FAERS Safety Report 10210672 (Version 1)
Quarter: 2014Q2

REPORT INFORMATION
  Report Type: Spontaneous
  Country: IT (occurrence: IT)
  Receive Date: 20140602
  Receipt Date: 20140602
  Transmission Date: 20141212
  Serious: Yes (Hospitalization)
  Sender: FDA-Public Use
  Company Number: IT-TEVA-483495ISR

PATIENT
  Age: 89 Year
  Sex: Female

DRUGS (10)
  1. PAROXETINE HYDROCHLORIDE [Suspect]
     Indication: PRODUCT USED FOR UNKNOWN INDICATION
     Dosage: 20 MILLIGRAM DAILY;
     Route: 048
     Dates: start: 20140101, end: 20140408
  2. TALOFEN - 4 G/100 ML GOCCE ORALI, SOLUZIONE - ABBOTT S.R.L. [Interacting]
     Indication: PSYCHOMOTOR HYPERACTIVITY
     Dosage: 20 GTT DAILY;
     Route: 048
     Dates: start: 20140406, end: 20140408
  3. HALCION - 250 MICROGRAMMI COMPRESSE [Concomitant]
     Indication: PRODUCT USED FOR UNKNOWN INDICATION
     Route: 048
     Dates: start: 20140406, end: 20140408
  4. MATRIFEN - 50 MCG/ORA CEROTTI TRANSDERMICI [Concomitant]
     Indication: PAIN
     Route: 062
     Dates: start: 20120101, end: 20140408
  5. PALEXIA - 100 MG COMPRESSE A RILASCIO PROLUNGATO [Concomitant]
     Indication: PAIN
     Dosage: 2 DOSAGE FORMS DAILY;
     Route: 048
     Dates: start: 20140101, end: 20140408
  6. CRESTOR - COMPRESSE RIVESTITE CON FILM [Concomitant]
     Indication: DYSLIPIDAEMIA
  7. GLIBOMET - 400 MG + 2,5 MG COMPRESSE RIVESTITE CON FILM [Concomitant]
     Indication: DIABETES MELLITUS
     Dosage: METFORMIN HYDROCHLORIDE 400MG+GLIBENCLAMIDE 2.5MG
  8. LASIX - 25 MG COMPRESSE [Concomitant]
     Indication: HYPERTENSION
     Route: 048
     Dates: start: 20120501, end: 20140408
  9. APROVEL - COMPRESSE 150 MG [Concomitant]
     Indication: HYPERTENSION
     Dates: start: 20120901, end: 20140408
  10. TIKLID - 250MG COMPRESSE RIVESTITE [Concomitant]
     Indication: PRODUCT USED FOR UNKNOWN INDICATION
     Dosage: 2 DOSAGE FORMS DAILY;

REACTIONS (7)
  - Drug interaction [Recovered/Resolved]
  - Loss of consciousness [Recovered/Resolved]
  - Muscle contractions involuntary [Recovered/Resolved]
  - Trismus [Recovered/Resolved]
  - Eye movement disorder [Recovered/Resolved]
  - Blood glucose increased [None]
  - Tachycardia [None]
